FAERS Safety Report 5241377-7 (Version None)
Quarter: 2007Q1

REPORT INFORMATION
  Report Type: 
  Country: None (occurrence: None)
  Receive Date: 20070220
  Receipt Date: 20070215
  Transmission Date: 20070707
  Serious: Yes (Other)
  Sender: FDA-Public Use
  Company Number: NL-BAYER-200614630GDS

PATIENT
  Age: 67 Year
  Sex: Male

DRUGS (3)
  1. NEXAVAR [Suspect]
     Indication: CLEAR CELL CARCINOMA OF THE KIDNEY
     Dosage: TOTAL DAILY DOSE: 800 MG
     Route: 048
     Dates: start: 20060912, end: 20061026
  2. SELOKEEN [Concomitant]
     Indication: DRUG USE FOR UNKNOWN INDICATION
     Route: 065
  3. ZOCOR [Concomitant]
     Indication: DRUG USE FOR UNKNOWN INDICATION
     Route: 065

REACTIONS (7)
  - ALOPECIA [None]
  - BLISTER [None]
  - CHEST DISCOMFORT [None]
  - CHEST PAIN [None]
  - NAUSEA [None]
  - RASH VESICULAR [None]
  - SYNCOPE [None]
